FAERS Safety Report 8246675-0 (Version None)
Quarter: 2012Q1

REPORT INFORMATION
  Report Type: 
  Country: None (occurrence: None)
  Receive Date: 20120330
  Receipt Date: 20120328
  Transmission Date: 20120608
  Serious: Yes (Life-Threatening, Hospitalization)
  Sender: FDA-Public Use
  Company Number: NO-B.I. PHARMACEUTICALS,INC./RIDGEFIELD-2012-SW-00227NO

PATIENT
  Sex: Female

DRUGS (6)
  1. METOPROLOL SUCCINATE [Concomitant]
     Indication: ATRIAL FIBRILLATION
  2. PRADAXA [Suspect]
     Indication: ATRIAL FIBRILLATION
     Dosage: 220 MG
     Dates: start: 20111001, end: 20111121
  3. ATACAND [Concomitant]
     Indication: HYPERTENSION
  4. FLUANXOL [Concomitant]
  5. PRILOSEC [Concomitant]
     Indication: GASTROOESOPHAGEAL REFLUX DISEASE
  6. METOPROLOL SUCCINATE [Concomitant]
     Indication: ARRHYTHMIA

REACTIONS (3)
  - MYOCARDIAL INFARCTION [None]
  - ANAEMIA [None]
  - GASTROINTESTINAL HAEMORRHAGE [None]
